FAERS Safety Report 10098378 (Version 1)
Quarter: 2014Q2

REPORT INFORMATION
  Report Type: Spontaneous
  Country: US (occurrence: US)
  Receive Date: 20140423
  Receipt Date: 20140423
  Transmission Date: 20141212
  Serious: No
  Sender: FDA-Public Use
  Company Number: US-PFIZER INC-2014109544

PATIENT
  Age: 46 Year
  Sex: Female

DRUGS (1)
  1. FLECTOR [Suspect]
     Dosage: UNK

REACTIONS (1)
  - Back disorder [Unknown]
